FAERS Safety Report 18289013 (Version 1)
Quarter: 2020Q3

REPORT INFORMATION
  Report Type: Spontaneous
  Country: US (occurrence: US)
  Receive Date: 20200921
  Receipt Date: 20200921
  Transmission Date: 20201103
  Serious: Yes (Death, Other)
  Sender: FDA-Public Use
  Company Number: US-SHIRE-US202030419

PATIENT
  Age: 91 Year

DRUGS (1)
  1. VPRIV [Suspect]
     Active Substance: VELAGLUCERASE ALFA
     Indication: PRODUCT USED FOR UNKNOWN INDICATION
     Dosage: 2800 UNK, 1X/2WKS
     Route: 042
     Dates: start: 20111026

REACTIONS (1)
  - Death [Fatal]

NARRATIVE: CASE EVENT DATE: 20200906
